FAERS Safety Report 13647460 (Version 5)
Quarter: 2017Q4

REPORT INFORMATION
  Report Type: Spontaneous
  Country: JP (occurrence: JP)
  Receive Date: 20170613
  Receipt Date: 20171212
  Transmission Date: 20180320
  Serious: Yes (Death, Other)
  Sender: FDA-Public Use
  Company Number: JP-009507513-1706JPN000855J

PATIENT
  Age: 65 Year
  Sex: Male
  Weight: 51 kg

DRUGS (11)
  1. E KEPPRA [Concomitant]
     Active Substance: LEVETIRACETAM
     Dosage: UNK
     Route: 065
  2. BETAMETHASONE. [Concomitant]
     Active Substance: BETAMETHASONE
     Indication: METASTASES TO MENINGES
     Dosage: 1 MG, QD
     Route: 048
     Dates: end: 20170602
  3. PANVITAN [Concomitant]
     Dosage: UNK
     Route: 065
  4. MAGNESIUM OXIDE. [Concomitant]
     Active Substance: MAGNESIUM OXIDE
     Dosage: UNK
     Route: 065
  5. UBRETID [Concomitant]
     Active Substance: DISTIGMINE BROMIDE
     Route: 048
  6. LOXOPROFEN NA [Concomitant]
     Active Substance: LOXOPROFEN SODIUM
     Dosage: UNK
     Route: 065
  7. FAMOSTAGINE [Concomitant]
     Active Substance: FAMOTIDINE
     Dosage: UNK
     Route: 065
  8. ARCRANE [Concomitant]
     Dosage: UNK
     Route: 048
  9. KEYTRUDA [Suspect]
     Active Substance: PEMBROLIZUMAB
     Indication: LUNG ADENOCARCINOMA STAGE IV
     Dosage: 200 MG, UNK
     Route: 041
     Dates: start: 20170529, end: 20170603
  10. NAUZELIN [Concomitant]
     Active Substance: DOMPERIDONE
     Dosage: UNK
     Route: 048
  11. URIEF [Concomitant]
     Active Substance: SILODOSIN
     Dosage: UNK
     Route: 048

REACTIONS (2)
  - Epilepsy [Fatal]
  - Malignant neoplasm progression [Fatal]

NARRATIVE: CASE EVENT DATE: 20170601
